FAERS Safety Report 8290243-1 (Version None)
Quarter: 2012Q2

REPORT INFORMATION
  Report Type: 
  Country: None (occurrence: None)
  Receive Date: 20120417
  Receipt Date: 20120409
  Transmission Date: 20120825
  Serious: Yes (Hospitalization)
  Sender: FDA-Public Use
  Company Number: US-JNJFOC-20120404278

PATIENT
  Sex: Female
  Weight: 61.2 kg

DRUGS (13)
  1. DILTIAZEM HCL [Concomitant]
  2. HYDROCHLOROTHIAZIDE [Concomitant]
  3. MIRTAZAPINE [Concomitant]
  4. ENALAPRIL MALEATE [Concomitant]
  5. METFORMIN HCL [Concomitant]
  6. ULTRAM [Concomitant]
  7. EFFEXOR XR [Concomitant]
  8. DIGOXIN [Concomitant]
  9. XARELTO [Suspect]
     Indication: ATRIAL FIBRILLATION
     Route: 048
     Dates: start: 20120221
  10. ATIVAN [Concomitant]
  11. ALBUTEROL [Concomitant]
  12. ASPIRIN [Concomitant]
  13. ADVAIR DISKUS 100/50 [Concomitant]
     Route: 055

REACTIONS (7)
  - GASTROINTESTINAL HAEMORRHAGE [None]
  - CHEST PAIN [None]
  - CARDIAC TAMPONADE [None]
  - HYPOTENSION [None]
  - PERICARDIAL HAEMORRHAGE [None]
  - ABDOMINAL PAIN [None]
  - DYSPNOEA [None]
